FAERS Safety Report 17589010 (Version 1)
Quarter: 2020Q1

REPORT INFORMATION
  Report Type: Other
  Country: GB (occurrence: GB)
  Receive Date: 20200327
  Receipt Date: 20200327
  Transmission Date: 20200409
  Serious: No
  Sender: FDA-Public Use
  Company Number: GB-LUPIN PHARMACEUTICALS INC.-2019-07420

PATIENT
  Age: 53 Year
  Sex: Female
  Weight: 80 kg

DRUGS (14)
  1. PARACETAMOL [Concomitant]
     Active Substance: ACETAMINOPHEN
     Indication: ILL-DEFINED DISORDER
     Dosage: UNK UNK, QID (TAKE 1 OR 2 4 TIMES/DAY)
     Route: 065
     Dates: start: 20170925, end: 20171201
  2. NAPROXEN. [Concomitant]
     Active Substance: NAPROXEN
     Indication: ILL-DEFINED DISORDER
     Dosage: 1 DOSAGE FORM, TID (TAKE ONE 3 TIMES/DAY WITH MEALS)
     Route: 065
     Dates: start: 20171229, end: 20180105
  3. BETNOVATE [Concomitant]
     Active Substance: BETAMETHASONE
     Dosage: UNK UNK, QD (APPLY TWICE A DAY FOR 2 WEEKS THEN ONCE A DAY)
     Route: 065
  4. SERTRALINE [Suspect]
     Active Substance: SERTRALINE HYDROCHLORIDE
     Indication: ILL-DEFINED DISORDER
     Dosage: UNK
     Route: 065
     Dates: start: 20180213
  5. PARACETAMOL [Concomitant]
     Active Substance: ACETAMINOPHEN
     Dosage: UNK UNK, QID (TAKE 1 OR 2 4 TIMES/DAY) (M + A,PHARMACHEM)
     Route: 065
     Dates: start: 20171201
  6. METHOCARBAMOL. [Concomitant]
     Active Substance: METHOCARBAMOL
     Indication: ILL-DEFINED DISORDER
     Dosage: 1 DOSAGE FORM, QID (TAKE ONE 4 TIMES/DAY)
     Route: 065
     Dates: start: 20180201
  7. FOSTAIR [Concomitant]
     Active Substance: BECLOMETHASONE\FORMOTEROL
     Indication: ILL-DEFINED DISORDER
     Dosage: 2 DOSAGE FORM, BID (TWO PUFFS TWICE DAILY)
     Route: 065
     Dates: start: 20171017
  8. LEVOTHYROXINE. [Concomitant]
     Active Substance: LEVOTHYROXINE
     Indication: ILL-DEFINED DISORDER
     Dosage: 1 DOSAGE FORM, QD (TAKE ONE EACH MORNING)
     Route: 065
     Dates: start: 20150922
  9. AMITRIPTYLINE HYDROCHLORIDE. [Concomitant]
     Active Substance: AMITRIPTYLINE HYDROCHLORIDE
     Indication: ILL-DEFINED DISORDER
     Dosage: 3 DOSAGE FORM, QD (TAKE THREE TABLETS AT NIGHT)
     Route: 065
     Dates: start: 20171108, end: 20180102
  10. TRAMADOL. [Concomitant]
     Active Substance: TRAMADOL
     Indication: ILL-DEFINED DISORDER
     Dosage: UNK UNK, QID (TAKE 1 OR 2 UP TO 4 TIMES A DAY)
     Route: 065
     Dates: start: 20170726
  11. CAPSAICIN. [Concomitant]
     Active Substance: CAPSAICIN
     Indication: ILL-DEFINED DISORDER
     Dosage: UNK UNK, QID (APPLY 4 TIMES/DAY)
     Route: 065
     Dates: start: 20180102, end: 20180112
  12. NITROFURANTOIN. [Concomitant]
     Active Substance: NITROFURANTOIN
     Indication: ILL-DEFINED DISORDER
     Dosage: 1 DOSAGE FORM, QID (1 TO BE TAKEN FOUR TIMES DAILY)
     Route: 065
     Dates: start: 20171128, end: 20171201
  13. BETNOVATE [Concomitant]
     Active Substance: BETAMETHASONE
     Indication: ILL-DEFINED DISORDER
     Dosage: UNK UNK, BID (APPLY TWICE A DAY FOR 2 WEEKS THEN ONCE A DAY)
     Route: 064
     Dates: start: 20171219, end: 20180116
  14. PHENOXYMETHYLPENICILLIN [Concomitant]
     Active Substance: PENICILLIN V
     Indication: ILL-DEFINED DISORDER
     Dosage: 2 DOSAGE FORM, QID (TAKE TWO 4 TIMES/DAY)
     Route: 065
     Dates: start: 20180212, end: 20180222

REACTIONS (1)
  - Rash [Recovering/Resolving]

NARRATIVE: CASE EVENT DATE: 20180222
